FAERS Safety Report 7080987-1 (Version None)
Quarter: 2010Q4

REPORT INFORMATION
  Report Type: 
  Country: None (occurrence: None)
  Receive Date: 20101102
  Receipt Date: 20101102
  Transmission Date: 20110411
  Serious: Yes (Other)
  Sender: FDA-Public Use
  Company Number: None

PATIENT
  Sex: Male
  Weight: 122.4712 kg

DRUGS (1)
  1. FLUOROURACIL [Suspect]
     Indication: BASAL CELL CARCINOMA
     Dosage: APPLY TO RED AREAS AS INDICATE TWICE A DAY TOP
     Route: 061
     Dates: start: 20100930, end: 20101012

REACTIONS (8)
  - DEPRESSION [None]
  - FATIGUE [None]
  - MALAISE [None]
  - PAIN [None]
  - PYREXIA [None]
  - RESTLESSNESS [None]
  - SCROTAL ERYTHEMA [None]
  - VISION BLURRED [None]
